FAERS Safety Report 25049754 (Version 2)
Quarter: 2025Q3

REPORT INFORMATION
  Report Type: Report from Study
  Country: US (occurrence: US)
  Receive Date: 20250307
  Receipt Date: 20250916
  Transmission Date: 20251020
  Serious: No
  Sender: DR REDDYS
  Company Number: US-DRL-USA-USA/2025/02/002887

PATIENT
  Age: 9 Year
  Sex: Female
  Weight: 37.19 kg

DRUGS (2)
  1. JAVYGTOR [Suspect]
     Active Substance: SAPROPTERIN DIHYDROCHLORIDE
     Indication: Phenylketonuria
     Dosage: TAKE ONE 500 MG POWDER PACKET ALONG WITH TWO 100 MG POWDER PACKET ONCE DAILY WITH MEAL FOR A TOTAL D
     Route: 048
  2. JAVYGTOR [Suspect]
     Active Substance: SAPROPTERIN DIHYDROCHLORIDE
     Indication: Phenylketonuria
     Dosage: TAKE ONE 500 MG POWDER PACKET ALONG WITH TWO 100 MG POWDER PACKET ONCE DAILY WITH MEAL FOR A TOTAL D
     Route: 048

REACTIONS (3)
  - Influenza [Recovering/Resolving]
  - Decreased appetite [Recovering/Resolving]
  - Drug effect less than expected [Unknown]
